FAERS Safety Report 7634207-7 (Version None)
Quarter: 2011Q3

REPORT INFORMATION
  Report Type: 
  Country: None (occurrence: None)
  Receive Date: 20110725
  Receipt Date: 20110510
  Transmission Date: 20111222
  Serious: No
  Sender: FDA-Public Use
  Company Number: US-B.I. PHARMACEUTICALS,INC./RIDGEFIELD-2011-BP-10315BP

PATIENT
  Sex: Male

DRUGS (11)
  1. DILTIAZEM [Concomitant]
     Dosage: 240 MG
  2. METOPROLOL TARTRATE [Concomitant]
  3. ALLOPURINOL [Concomitant]
     Dates: end: 20110426
  4. TAMSULOSIN HCL [Concomitant]
     Dosage: 0.4 MG
  5. LISINOPRIL [Concomitant]
     Dosage: 80 MG
  6. FINASTERIDE [Concomitant]
     Dosage: 5 MG
  7. TEMAZEPAM [Concomitant]
     Indication: INSOMNIA
  8. GLIMEPIRIDE [Concomitant]
     Dosage: 8 MG
  9. LOSARTAN POTASSIUM [Concomitant]
     Dosage: 100 MG
  10. ASPIRIN [Concomitant]
     Dosage: 81 MG
  11. PRADAXA [Suspect]
     Indication: ATRIAL FIBRILLATION
     Dosage: 300 MG
     Route: 048
     Dates: start: 20110301

REACTIONS (4)
  - FATIGUE [None]
  - DYSPEPSIA [None]
  - HYPOTENSION [None]
  - BLOOD GLUCOSE INCREASED [None]
